FAERS Safety Report 20865898 (Version 1)
Quarter: 2022Q2

REPORT INFORMATION
  Report Type: Spontaneous
  Country: US (occurrence: None)
  Receive Date: 20220523
  Receipt Date: 20220523
  Transmission Date: 20220721
  Serious: No
  Sender: FDA-Public Use
  Company Number: None

PATIENT
  Age: 52 Year
  Sex: Male

DRUGS (1)
  1. FLUOXETINE [Suspect]
     Active Substance: FLUOXETINE HYDROCHLORIDE
     Dates: start: 20170907, end: 20211220

REACTIONS (6)
  - Suicidal ideation [None]
  - Tachyphrenia [None]
  - Agitation [None]
  - Hallucination [None]
  - Mania [None]
  - Alcohol use disorder [None]

NARRATIVE: CASE EVENT DATE: 20211211
